FAERS Safety Report 13015266 (Version 1)
Quarter: 2016Q4

REPORT INFORMATION
  Report Type: Spontaneous
  Country: NL (occurrence: NL)
  Receive Date: 20161211
  Receipt Date: 20161211
  Transmission Date: 20170207
  Serious: Yes (Life-Threatening, Hospitalization)
  Sender: FDA-Public Use
  Company Number: NL-TEVA-717375ACC

PATIENT
  Age: 65 Year
  Sex: Male
  Weight: 60 kg

DRUGS (6)
  1. ENBREL INJVLST 50MG/ML WWSP 1ML [Concomitant]
     Dosage: ONCE WEEKLY 1 INJECTION
     Route: 058
  2. ESOMEPRAZOL PCH CAPSULE MSR 40MG [Concomitant]
     Dosage: ONCE DAILY 1 CAPSULE
     Route: 048
  3. FOLIUMZUUR PCH TABLET 5MG [Concomitant]
     Dosage: 5 TIMES PER WEEK 1 TABLET
     Route: 048
  4. METHOTREXATE. [Suspect]
     Active Substance: METHOTREXATE
     Indication: RHEUMATOID ARTHRITIS
     Dosage: ONCE WEEKLY 1 PIECE(S)
     Route: 058
     Dates: start: 20130101, end: 20161004
  5. PLAQUENIL [Concomitant]
     Active Substance: HYDROXYCHLOROQUINE SULFATE
     Dosage: 200 MILLIGRAM DAILY; ONE DAILY 1 TABLET
     Route: 048
  6. CALCI CHEW D3 KAUWTABLET  500MG/800IE [Concomitant]
     Dosage: 1 DOSAGE FORMS DAILY; 1 DAILY 1 TABLET VN
     Route: 048

REACTIONS (1)
  - Gastrointestinal ischaemia [Recovering/Resolving]

NARRATIVE: CASE EVENT DATE: 20161003
